FAERS Safety Report 16586948 (Version 5)
Quarter: 2019Q3

REPORT INFORMATION
  Report Type: Spontaneous
  Country: US (occurrence: US)
  Receive Date: 20190717
  Receipt Date: 20190930
  Transmission Date: 20191004
  Serious: Yes (Disabling)
  Sender: FDA-Public Use
  Company Number: US-SA-2019SA189480

PATIENT
  Age: 76 Year
  Sex: Female

DRUGS (1)
  1. PRALUENT [Suspect]
     Active Substance: ALIROCUMAB
     Indication: BLOOD CHOLESTEROL
     Dosage: 75 MG

REACTIONS (14)
  - Sitting disability [Unknown]
  - Condition aggravated [Unknown]
  - Dysstasia [Unknown]
  - Oedema [Recovering/Resolving]
  - Drug interaction [Unknown]
  - Gait disturbance [Unknown]
  - Back pain [Recovering/Resolving]
  - Unevaluable event [Unknown]
  - Hypersensitivity [Unknown]
  - Skin tightness [Unknown]
  - Nausea [Unknown]
  - Peripheral swelling [Unknown]
  - Paraesthesia [Unknown]
  - Muscle tightness [Unknown]

NARRATIVE: CASE EVENT DATE: 20190709
